FAERS Safety Report 21582849 (Version 1)
Quarter: 2022Q4

REPORT INFORMATION
  Report Type: Report from Study
  Country: JP (occurrence: JP)
  Receive Date: 20221111
  Receipt Date: 20221111
  Transmission Date: 20230113
  Serious: Yes (Death)
  Sender: FDA-Public Use
  Company Number: JP-MYLANLABS-2022M1122969

PATIENT

DRUGS (2)
  1. CARBOPLATIN [Suspect]
     Active Substance: CARBOPLATIN
     Indication: Squamous cell carcinoma of lung
     Dosage: WITH AN AREA UNDER THE CONCENTRATION-TIME CURVE OF 6 MG/ML PER MINUTE FOR 30 MINUTES ON DAY 1 OF A S
     Route: 042
  2. PACLITAXEL [Suspect]
     Active Substance: PACLITAXEL
     Indication: Squamous cell carcinoma of lung
     Dosage: 100 MILLIGRAM/SQ. METER, CYCLE, FOR 60 MINUTES ON DAYS 1, 8 AND 15, SCHEDULED EVERY 3 WEEKS
     Route: 042

REACTIONS (1)
  - Respiratory failure [Fatal]
